FAERS Safety Report 19666982 (Version 19)
Quarter: 2023Q4

REPORT INFORMATION
  Report Type: Report from Study
  Country: US (occurrence: US)
  Receive Date: 20210806
  Receipt Date: 20231017
  Transmission Date: 20240109
  Serious: Yes (Hospitalization, Other)
  Sender: FDA-Public Use
  Company Number: US-AMRYT PHARMACEUTICALS DAC-AEGR005143

PATIENT
  Age: 21 Year
  Sex: Female
  Weight: 44.8 kg

DRUGS (33)
  1. METRELEPTIN [Suspect]
     Active Substance: METRELEPTIN
     Indication: Acquired generalised lipodystrophy
     Dosage: 1 MILLILITER, QD
     Route: 058
     Dates: start: 202012
  2. METRELEPTIN [Suspect]
     Active Substance: METRELEPTIN
     Dosage: 2.5 MILLIGRAM
     Route: 058
     Dates: start: 20210118, end: 20210122
  3. METRELEPTIN [Suspect]
     Active Substance: METRELEPTIN
     Dosage: 3.75 MILLIGRAM, QD
     Dates: start: 20210123, end: 20210209
  4. METRELEPTIN [Suspect]
     Active Substance: METRELEPTIN
     Dosage: 5 MILLIGRAM, QD
     Route: 058
     Dates: start: 20210210, end: 20220221
  5. METRELEPTIN [Suspect]
     Active Substance: METRELEPTIN
     Dosage: 3.75 MILLIGRAM, QD
     Dates: start: 20220228, end: 20220228
  6. METRELEPTIN [Suspect]
     Active Substance: METRELEPTIN
     Dosage: 5 MILLIGRAM, QD
     Dates: start: 20220301, end: 20220314
  7. METRELEPTIN [Suspect]
     Active Substance: METRELEPTIN
     Dosage: 3.75 MILLIGRAM, QD
     Dates: start: 20220315, end: 20220520
  8. METRELEPTIN [Suspect]
     Active Substance: METRELEPTIN
     Dosage: 1 / DAY
  9. METRELEPTIN [Suspect]
     Active Substance: METRELEPTIN
     Dosage: 7.5 MILLIGRAM, QD
     Dates: start: 20220520, end: 20230802
  10. METRELEPTIN [Suspect]
     Active Substance: METRELEPTIN
     Dosage: 5 MILLIGRAM, QD
     Dates: start: 20230802
  11. METFORMIN [Concomitant]
     Active Substance: METFORMIN HYDROCHLORIDE
     Indication: Diabetes mellitus
     Dosage: 1000 MILLIGRAM, BID
     Route: 048
     Dates: start: 2018, end: 20210701
  12. METFORMIN [Concomitant]
     Active Substance: METFORMIN HYDROCHLORIDE
     Dosage: 1000 MILLIGRAM, BID
     Route: 048
     Dates: start: 20210705
  13. FENOFIBRATE [Concomitant]
     Active Substance: FENOFIBRATE
     Indication: Hypertriglyceridaemia
     Dosage: 160 MILLIGRAM, QD
     Route: 048
     Dates: start: 201912
  14. ERGOCALCIFEROL [Concomitant]
     Active Substance: ERGOCALCIFEROL
     Indication: Vitamin D decreased
     Dosage: 50000 INTERNATIONAL UNIT, Q WEEKLY
     Route: 048
     Dates: start: 20210219
  15. SPIRONOLACTONE [Concomitant]
     Active Substance: SPIRONOLACTONE
     Indication: Hirsutism
     Dosage: 25 MILLIGRAM, QD
     Route: 048
     Dates: start: 20211015, end: 20230802
  16. INSULIN NOS [Concomitant]
     Active Substance: INSULIN NOS
     Indication: Diabetes mellitus
     Dosage: 100 INTERNATIONAL UNIT, QD
     Route: 058
  17. INSULIN NOS [Concomitant]
     Active Substance: INSULIN NOS
     Dosage: 24 INTERNATIONAL UNIT, SINGLE
     Route: 058
     Dates: start: 20220225, end: 20220225
  18. INSULIN NOS [Concomitant]
     Active Substance: INSULIN NOS
     Dosage: 30 INTERNATIONAL UNIT, SINGLE
     Route: 058
     Dates: start: 20220228, end: 20220228
  19. INSULIN NOS [Concomitant]
     Active Substance: INSULIN NOS
     Dosage: 80 INTERNATIONAL UNIT, QD
     Route: 058
     Dates: start: 20220301, end: 20220304
  20. INSULIN NOS [Concomitant]
     Active Substance: INSULIN NOS
     Dosage: 100 INTERNATIONAL UNIT PER MILLILITRE, QD
     Route: 042
     Dates: start: 20220303, end: 20220304
  21. INSULIN NOS [Concomitant]
     Active Substance: INSULIN NOS
     Dosage: 100 INTERNATIONAL UNIT, QD
     Route: 058
     Dates: start: 20220305, end: 20220410
  22. INSULIN LISPRO [Concomitant]
     Active Substance: INSULIN LISPRO
     Indication: Diabetes mellitus
     Dosage: 6 INTERNATIONAL UNIT, QD
     Route: 058
     Dates: start: 20220225, end: 20220301
  23. INSULIN LISPRO [Concomitant]
     Active Substance: INSULIN LISPRO
     Dosage: 9 INTERNATIONAL UNIT, QD
     Route: 058
     Dates: start: 20220301, end: 20220304
  24. INSULIN LISPRO [Concomitant]
     Active Substance: INSULIN LISPRO
     Dosage: 14 INTERNATIONAL UNIT, BID
     Route: 058
     Dates: start: 20220518
  25. SODIUM CHLORIDE [Concomitant]
     Active Substance: SODIUM CHLORIDE
     Indication: Diabetes mellitus
     Dosage: 0.9 % CONTINUOUS
     Route: 042
     Dates: start: 20220303, end: 20220304
  26. HUMULIN R [Concomitant]
     Active Substance: INSULIN HUMAN
     Indication: Diabetes mellitus
     Dosage: 100 INTERNATIONAL UNIT, QAM
     Route: 058
     Dates: start: 20220411, end: 20220509
  27. HUMULIN R [Concomitant]
     Active Substance: INSULIN HUMAN
     Dosage: 100 INTERNATIONAL UNIT, QD WITH LUNCH
     Route: 058
     Dates: start: 20220411, end: 20220509
  28. HUMULIN R [Concomitant]
     Active Substance: INSULIN HUMAN
     Dosage: 100 INTERNATIONAL UNIT, QD W LUNCH
     Route: 058
     Dates: start: 20220510
  29. HUMULIN R [Concomitant]
     Active Substance: INSULIN HUMAN
     Dosage: 100 INTERNATIONAL UNIT, QAM
     Route: 058
     Dates: start: 20220510
  30. EVUSHELD [Concomitant]
     Active Substance: CILGAVIMAB\TIXAGEVIMAB
     Indication: Prophylaxis
     Dosage: 150 MILLIGRAM, ONCE
     Route: 030
     Dates: start: 20220510, end: 20220510
  31. AZITHROMYCIN [Concomitant]
     Active Substance: AZITHROMYCIN
     Indication: Cough
     Dosage: 250 MILLIGRAM, BID
     Route: 048
     Dates: start: 20221127, end: 20221206
  32. DOXYCYCLINE [Concomitant]
     Active Substance: DOXYCYCLINE
     Indication: Bronchitis
     Dosage: 100 MILLIGRAM, BID
     Route: 048
     Dates: start: 20221127, end: 20221206
  33. MYXREDLIN [Concomitant]
     Active Substance: INSULIN HUMAN
     Indication: Diabetes mellitus
     Dosage: 100 IU/ML
     Route: 042
     Dates: start: 20220303, end: 20220304

REACTIONS (17)
  - Autoimmune hepatitis [Recovered/Resolved]
  - Hepatic cirrhosis [Unknown]
  - Steatohepatitis [Unknown]
  - Influenza [Unknown]
  - Laboratory test abnormal [Unknown]
  - Menstrual disorder [Recovered/Resolved]
  - Hyperglycaemia [Recovered/Resolved]
  - Viral infection [Recovered/Resolved]
  - Jaundice [Not Recovered/Not Resolved]
  - Blood bilirubin increased [Recovered/Resolved]
  - COVID-19 [Recovered/Resolved]
  - Weight decreased [Not Recovered/Not Resolved]
  - Abdominal pain [Recovered/Resolved]
  - Arthralgia [Recovered/Resolved]
  - Treatment noncompliance [Unknown]
  - Drug ineffective [Unknown]
  - Therapy interrupted [Unknown]

NARRATIVE: CASE EVENT DATE: 20201201
